FAERS Safety Report 15107291 (Version 1)
Quarter: 2018Q3

REPORT INFORMATION
  Report Type: Spontaneous
  Country: US (occurrence: US)
  Receive Date: 20180704
  Receipt Date: 20180704
  Transmission Date: 20181010
  Serious: Yes (Other)
  Sender: FDA-Public Use
  Company Number: US-BAUSCH-BL-2018-018010

PATIENT
  Age: 76 Year
  Sex: Female

DRUGS (4)
  1. APRISO [Suspect]
     Active Substance: MESALAMINE
     Indication: COLITIS ULCERATIVE
     Route: 048
     Dates: start: 20170526, end: 20170528
  2. APRISO [Suspect]
     Active Substance: MESALAMINE
     Route: 048
     Dates: start: 20171225
  3. APRISO [Suspect]
     Active Substance: MESALAMINE
     Route: 048
     Dates: start: 20180123, end: 20180123
  4. APRISO [Suspect]
     Active Substance: MESALAMINE
     Route: 048
     Dates: start: 201806

REACTIONS (3)
  - Haematochezia [Recovering/Resolving]
  - Haemorrhoids [Recovering/Resolving]
  - Drug dose omission [Recovered/Resolved]
